FAERS Safety Report 9486513 (Version 4)
Quarter: 2013Q4

REPORT INFORMATION
  Report Type: Spontaneous
  Country: JP (occurrence: JP)
  Receive Date: 20130829
  Receipt Date: 20131113
  Transmission Date: 20140711
  Serious: Yes (Death)
  Sender: FDA-Public Use
  Company Number: JP-B.I. PHARMACEUTICALS,INC./RIDGEFIELD-2013-BI-26733NB

PATIENT
  Age: 77 Year
  Sex: Male
  Weight: 80 kg

DRUGS (11)
  1. PRAZAXA [Suspect]
     Indication: ATRIAL FIBRILLATION
     Dosage: 220 MG
     Route: 048
     Dates: start: 20120419, end: 20130614
  2. THYRADIN S [Concomitant]
     Indication: POST PROCEDURAL HYPOTHYROIDISM
     Dosage: 125 MCG
     Route: 048
     Dates: start: 1979, end: 20130614
  3. TAKEPRON [Concomitant]
     Indication: GASTROOESOPHAGEAL REFLUX DISEASE
     Dosage: 30 MG
     Route: 048
     Dates: end: 20130614
  4. LASIX [Concomitant]
     Indication: CARDIAC FAILURE CHRONIC
     Dosage: 10 MG
     Route: 048
     Dates: end: 20130614
  5. MAGMITT [Concomitant]
     Indication: CONSTIPATION
     Dosage: 1500 MG
     Route: 048
     Dates: end: 20130614
  6. KLARICID [Concomitant]
     Indication: CHRONIC RESPIRATORY FAILURE
     Dosage: 200 MG
     Route: 048
     Dates: end: 20130614
  7. LIPOVAS [Concomitant]
     Indication: HYPERLIPIDAEMIA
     Dosage: 5 MG
     Route: 048
     Dates: start: 200803, end: 20130614
  8. PARIET [Concomitant]
     Indication: GASTROOESOPHAGEAL REFLUX DISEASE
     Dosage: 10 MG
     Route: 048
     Dates: end: 20130614
  9. AMBROXOL HYDROCHLORIDE [Concomitant]
     Indication: CHRONIC RESPIRATORY FAILURE
     Dosage: 45 MG
     Route: 048
     Dates: end: 20130614
  10. ALLEGRA [Concomitant]
     Indication: RHINITIS ALLERGIC
     Dosage: 60 MG
     Route: 048
     Dates: start: 201211, end: 20130614
  11. ARGAMATE [Concomitant]
     Indication: HYPERKALAEMIA
     Dosage: 75 G
     Route: 048
     Dates: end: 20130614

REACTIONS (1)
  - Cerebral haemorrhage [Fatal]
